FAERS Safety Report 8435765-5 (Version None)
Quarter: 2012Q2

REPORT INFORMATION
  Report Type: 
  Country: None (occurrence: None)
  Receive Date: 20120614
  Receipt Date: 20120608
  Transmission Date: 20120825
  Serious: Yes (Other)
  Sender: FDA-Public Use
  Company Number: CA-SP-2012-06089

PATIENT
  Age: 70 Year
  Sex: Female

DRUGS (2)
  1. TUBERSOL [Suspect]
     Indication: TUBERCULIN TEST
     Route: 023
  2. CORTISONE ACETATE [Concomitant]
     Route: 065

REACTIONS (6)
  - BRONCHOSPASM [None]
  - ERYTHEMA [None]
  - DYSPNOEA [None]
  - HYPERSENSITIVITY [None]
  - BURNING SENSATION MUCOSAL [None]
  - DYSPHAGIA [None]
